FAERS Safety Report 8440406-7 (Version None)
Quarter: 2012Q2

REPORT INFORMATION
  Report Type: 
  Country: None (occurrence: None)
  Receive Date: 20120615
  Receipt Date: 20120601
  Transmission Date: 20120825
  Serious: Yes (Other)
  Sender: FDA-Public Use
  Company Number: GB-WATSON-2012-10048

PATIENT
  Age: 66 Year
  Sex: Male
  Weight: 82 kg

DRUGS (1)
  1. LOSARTAN POTASSIUM [Suspect]
     Indication: PRODUCT USED FOR UNKNOWN INDICATION
     Dosage: UNK
     Route: 065
     Dates: start: 20120309

REACTIONS (6)
  - DYSPEPSIA [None]
  - LETHARGY [None]
  - ABDOMINAL PAIN UPPER [None]
  - NAUSEA [None]
  - PERIPHERAL COLDNESS [None]
  - ABDOMINAL DISCOMFORT [None]
